FAERS Safety Report 22216853 (Version 1)
Quarter: 2023Q2

REPORT INFORMATION
  Report Type: Spontaneous
  Country: US (occurrence: US)
  Receive Date: 20230417
  Receipt Date: 20230417
  Transmission Date: 20230721
  Serious: Yes (Other)
  Sender: FDA-Public Use
  Company Number: US-AMGEN-USASP2023063509

PATIENT
  Age: 69 Year
  Sex: Male

DRUGS (4)
  1. FILGRASTIM [Suspect]
     Active Substance: FILGRASTIM
     Indication: Prophylaxis
     Dosage: UNK
     Route: 065
  2. AZACITIDINE [Concomitant]
     Active Substance: AZACITIDINE
  3. CLADRIBINE [Concomitant]
     Active Substance: CLADRIBINE
  4. CYTARABINE [Concomitant]
     Active Substance: CYTARABINE

REACTIONS (2)
  - Myelodysplastic syndrome [Unknown]
  - Gene mutation [Unknown]
